FAERS Safety Report 9010951 (Version 1)
Quarter: 2013Q1

REPORT INFORMATION
  Report Type: Spontaneous
  Country: US (occurrence: US)
  Receive Date: 20130109
  Receipt Date: 20130109
  Transmission Date: 20140127
  Serious: Yes (Death)
  Sender: FDA-Public Use
  Company Number: US-ASTRAZENECA-2013SE01341

PATIENT
  Age: 31 Year
  Sex: Female

DRUGS (7)
  1. QUETIAPINE [Suspect]
     Route: 048
  2. CYCLOBENZAPRINE [Suspect]
     Route: 048
  3. ACETAMINOPHEN/BUTALBITAL/CAFFEINE/CODEINE [Suspect]
     Route: 048
  4. ACETAMINOPHEN\HYDROCODONE [Suspect]
     Route: 048
  5. TEMAZEPAM [Suspect]
     Route: 048
  6. ACETAMINOPHEN/OXYCODONE [Suspect]
     Route: 048
  7. LORATADINE [Suspect]
     Route: 048

REACTIONS (2)
  - Completed suicide [Fatal]
  - Toxicity to various agents [Fatal]
